FAERS Safety Report 10688892 (Version 2)
Quarter: 2015Q1

REPORT INFORMATION
  Report Type: Spontaneous
  Country: IT (occurrence: IT)
  Receive Date: 20150103
  Receipt Date: 20150217
  Transmission Date: 20150720
  Serious: Yes (Other)
  Sender: FDA-Public Use
  Company Number: IT-BRISTOL-MYERS SQUIBB COMPANY-BMS-2014-001804

PATIENT

DRUGS (3)
  1. FENOFIBRATE. [Interacting]
     Active Substance: FENOFIBRATE
     Indication: HYPERTRIGLYCERIDAEMIA
     Dosage: 145 MG, QD
     Route: 048
     Dates: start: 20141028
  2. COUMADIN [Suspect]
     Active Substance: WARFARIN SODIUM
     Indication: CEREBROVASCULAR ACCIDENT PROPHYLAXIS
     Dosage: 40 MG, QWK
     Route: 048
     Dates: start: 20040701
  3. DEPO-MEDROL [Interacting]
     Active Substance: METHYLPREDNISOLONE ACETATE
     Indication: RASH
     Dosage: 40 MG, TOTAL
     Route: 030
     Dates: start: 20141104

REACTIONS (3)
  - Drug interaction [Unknown]
  - International normalised ratio increased [Recovered/Resolved]
  - Dermatitis allergic [Unknown]

NARRATIVE: CASE EVENT DATE: 20141104
